FAERS Safety Report 14123765 (Version 1)
Quarter: 2017Q4

REPORT INFORMATION
  Report Type: Spontaneous
  Country: US (occurrence: US)
  Receive Date: 20171025
  Receipt Date: 20171025
  Transmission Date: 20180321
  Serious: Yes (Other)
  Sender: FDA-Public Use
  Company Number: US-BIOVITRUM-2017US0997

PATIENT

DRUGS (6)
  1. KINERET [Suspect]
     Active Substance: ANAKINRA
     Indication: AUTOINFLAMMATORY DISEASE
  2. CYCLOSPORINE. [Suspect]
     Active Substance: CYCLOSPORINE
  3. KINERET [Suspect]
     Active Substance: ANAKINRA
     Indication: HISTIOCYTOSIS HAEMATOPHAGIC
     Dosage: APPROXIMATELY 2 MG/KG/DAY
     Dates: end: 2015
  4. CANAKINUMAB. [Suspect]
     Active Substance: CANAKINUMAB
     Dates: start: 2015
  5. BACTRIM [Suspect]
     Active Substance: SULFAMETHOXAZOLE\TRIMETHOPRIM
  6. CORTICOSTEROIDS [Concomitant]
     Active Substance: CORTICOSTEROID NOS

REACTIONS (1)
  - Lung disorder [Recovered/Resolved]
